FAERS Safety Report 11209266 (Version 1)
Quarter: 2015Q2

REPORT INFORMATION
  Report Type: Spontaneous
  Country: DE (occurrence: DE)
  Receive Date: 20150622
  Receipt Date: 20150622
  Transmission Date: 20150821
  Serious: Yes (Other)
  Sender: FDA-Public Use
  Company Number: PHHY2015DE069371

PATIENT
  Age: 23 Year
  Sex: Male

DRUGS (1)
  1. ZOLEDRONATE [Suspect]
     Active Substance: ZOLEDRONIC ACID
     Indication: METASTASES TO BONE
     Dosage: 4 MG, UNK
     Route: 065

REACTIONS (7)
  - Hypoproteinaemia [Unknown]
  - Microangiopathic haemolytic anaemia [Unknown]
  - Thrombotic microangiopathy [Unknown]
  - Renal impairment [Unknown]
  - Hyperkalaemia [Unknown]
  - Blood creatinine increased [Unknown]
  - Proteinuria [Unknown]
